FAERS Safety Report 19917490 (Version 1)
Quarter: 2021Q4

REPORT INFORMATION
  Report Type: Spontaneous
  Country: CA (occurrence: CA)
  Receive Date: 20211004
  Receipt Date: 20211004
  Transmission Date: 20220304
  Serious: Yes (Death, Hospitalization, Disabling)
  Sender: FDA-Public Use
  Company Number: CA-TEVA-2021-CA-1960594

PATIENT
  Sex: Male
  Weight: 92 kg

DRUGS (56)
  1. DOXYCYCLINE HYCLATE [Suspect]
     Active Substance: DOXYCYCLINE HYCLATE
     Indication: Sepsis
     Route: 065
  2. DOXYCYCLINE HYCLATE [Suspect]
     Active Substance: DOXYCYCLINE HYCLATE
     Indication: Paraspinal abscess
     Route: 065
  3. DOXYCYCLINE HYCLATE [Suspect]
     Active Substance: DOXYCYCLINE HYCLATE
     Indication: Osteomyelitis
     Route: 065
  4. DOXYCYCLINE HYCLATE [Suspect]
     Active Substance: DOXYCYCLINE HYCLATE
     Indication: Oesophageal abscess
     Route: 065
  5. DOXYCYCLINE HYCLATE [Suspect]
     Active Substance: DOXYCYCLINE HYCLATE
     Indication: Intervertebral discitis
     Route: 065
  6. DOXYCYCLINE HYCLATE [Suspect]
     Active Substance: DOXYCYCLINE HYCLATE
     Indication: Inadequate diet
     Route: 065
  7. DOXYCYCLINE HYCLATE [Suspect]
     Active Substance: DOXYCYCLINE HYCLATE
     Indication: Burkholderia cepacia complex infection
     Route: 065
  8. CEFTAROLINE FOSAMIL [Suspect]
     Active Substance: CEFTAROLINE FOSAMIL
     Indication: Sepsis
     Route: 065
  9. CEFTAROLINE FOSAMIL [Suspect]
     Active Substance: CEFTAROLINE FOSAMIL
     Indication: Paraspinal abscess
     Route: 065
  10. CEFTAROLINE FOSAMIL [Suspect]
     Active Substance: CEFTAROLINE FOSAMIL
     Indication: Osteomyelitis
     Route: 065
  11. CEFTAROLINE FOSAMIL [Suspect]
     Active Substance: CEFTAROLINE FOSAMIL
     Indication: Oesophageal abscess
     Route: 065
  12. CEFTAROLINE FOSAMIL [Suspect]
     Active Substance: CEFTAROLINE FOSAMIL
     Indication: Intervertebral discitis
     Route: 065
  13. CEFTAROLINE FOSAMIL [Suspect]
     Active Substance: CEFTAROLINE FOSAMIL
     Indication: Inadequate diet
     Route: 065
  14. CEFTAROLINE FOSAMIL [Suspect]
     Active Substance: CEFTAROLINE FOSAMIL
     Indication: Burkholderia cepacia complex infection
     Route: 065
  15. CUBICIN [Suspect]
     Active Substance: DAPTOMYCIN
     Indication: Sepsis
     Route: 065
  16. CUBICIN [Suspect]
     Active Substance: DAPTOMYCIN
     Indication: Paraspinal abscess
     Route: 065
  17. CUBICIN [Suspect]
     Active Substance: DAPTOMYCIN
     Indication: Osteomyelitis
     Route: 065
  18. CUBICIN [Suspect]
     Active Substance: DAPTOMYCIN
     Indication: Oesophageal abscess
     Route: 065
  19. CUBICIN [Suspect]
     Active Substance: DAPTOMYCIN
     Indication: Intervertebral discitis
     Route: 065
  20. CUBICIN [Suspect]
     Active Substance: DAPTOMYCIN
     Indication: Inadequate diet
     Route: 065
  21. CUBICIN [Suspect]
     Active Substance: DAPTOMYCIN
     Indication: Burkholderia cepacia complex infection
     Route: 065
  22. DAPTOMYCIN [Suspect]
     Active Substance: DAPTOMYCIN
     Indication: Sepsis
     Route: 065
  23. DAPTOMYCIN [Suspect]
     Active Substance: DAPTOMYCIN
     Indication: Paraspinal abscess
     Route: 065
  24. DAPTOMYCIN [Suspect]
     Active Substance: DAPTOMYCIN
     Indication: Osteomyelitis
     Route: 065
  25. DAPTOMYCIN [Suspect]
     Active Substance: DAPTOMYCIN
     Indication: Oesophageal abscess
     Route: 065
  26. DAPTOMYCIN [Suspect]
     Active Substance: DAPTOMYCIN
     Indication: Intervertebral discitis
     Route: 065
  27. DAPTOMYCIN [Suspect]
     Active Substance: DAPTOMYCIN
     Indication: Inadequate diet
     Route: 065
  28. DAPTOMYCIN [Suspect]
     Active Substance: DAPTOMYCIN
     Indication: Burkholderia cepacia complex infection
     Route: 065
  29. LINEZOLID [Suspect]
     Active Substance: LINEZOLID
     Indication: Sepsis
     Route: 065
  30. LINEZOLID [Suspect]
     Active Substance: LINEZOLID
     Indication: Paraspinal abscess
     Route: 065
  31. LINEZOLID [Suspect]
     Active Substance: LINEZOLID
     Indication: Osteomyelitis
     Route: 065
  32. LINEZOLID [Suspect]
     Active Substance: LINEZOLID
     Indication: Oesophageal abscess
     Route: 065
  33. LINEZOLID [Suspect]
     Active Substance: LINEZOLID
     Indication: Intervertebral discitis
     Route: 065
  34. LINEZOLID [Suspect]
     Active Substance: LINEZOLID
     Indication: Inadequate diet
     Route: 065
  35. LINEZOLID [Suspect]
     Active Substance: LINEZOLID
     Indication: Burkholderia cepacia complex infection
     Route: 065
  36. RIFAMPIN [Suspect]
     Active Substance: RIFAMPIN
     Indication: Sepsis
     Route: 065
  37. RIFAMPIN [Suspect]
     Active Substance: RIFAMPIN
     Indication: Paraspinal abscess
     Route: 065
  38. RIFAMPIN [Suspect]
     Active Substance: RIFAMPIN
     Indication: Osteomyelitis
     Route: 065
  39. RIFAMPIN [Suspect]
     Active Substance: RIFAMPIN
     Indication: Oesophageal abscess
     Route: 065
  40. RIFAMPIN [Suspect]
     Active Substance: RIFAMPIN
     Indication: Intervertebral discitis
     Route: 065
  41. RIFAMPIN [Suspect]
     Active Substance: RIFAMPIN
     Indication: Inadequate diet
     Route: 065
  42. RIFAMPIN [Suspect]
     Active Substance: RIFAMPIN
     Indication: Burkholderia cepacia complex infection
     Route: 065
  43. TIGECYCLINE [Suspect]
     Active Substance: TIGECYCLINE
     Indication: Sepsis
     Route: 065
  44. TIGECYCLINE [Suspect]
     Active Substance: TIGECYCLINE
     Indication: Paraspinal abscess
     Route: 065
  45. TIGECYCLINE [Suspect]
     Active Substance: TIGECYCLINE
     Indication: Osteomyelitis
     Route: 065
  46. TIGECYCLINE [Suspect]
     Active Substance: TIGECYCLINE
     Indication: Oesophageal abscess
     Route: 065
  47. TIGECYCLINE [Suspect]
     Active Substance: TIGECYCLINE
     Indication: Intervertebral discitis
     Route: 065
  48. TIGECYCLINE [Suspect]
     Active Substance: TIGECYCLINE
     Indication: Inadequate diet
     Route: 065
  49. TIGECYCLINE [Suspect]
     Active Substance: TIGECYCLINE
     Indication: Burkholderia cepacia complex infection
     Route: 065
  50. VANCOMYCIN HYDROCHLORIDE [Suspect]
     Active Substance: VANCOMYCIN HYDROCHLORIDE
     Indication: Sepsis
     Route: 065
  51. VANCOMYCIN HYDROCHLORIDE [Suspect]
     Active Substance: VANCOMYCIN HYDROCHLORIDE
     Indication: Paraspinal abscess
     Route: 065
  52. VANCOMYCIN HYDROCHLORIDE [Suspect]
     Active Substance: VANCOMYCIN HYDROCHLORIDE
     Indication: Osteomyelitis
     Route: 065
  53. VANCOMYCIN HYDROCHLORIDE [Suspect]
     Active Substance: VANCOMYCIN HYDROCHLORIDE
     Indication: Oesophageal abscess
     Route: 065
  54. VANCOMYCIN HYDROCHLORIDE [Suspect]
     Active Substance: VANCOMYCIN HYDROCHLORIDE
     Indication: Intervertebral discitis
     Route: 065
  55. VANCOMYCIN HYDROCHLORIDE [Suspect]
     Active Substance: VANCOMYCIN HYDROCHLORIDE
     Indication: Inadequate diet
     Route: 065
  56. VANCOMYCIN HYDROCHLORIDE [Suspect]
     Active Substance: VANCOMYCIN HYDROCHLORIDE
     Indication: Burkholderia cepacia complex infection
     Route: 065

REACTIONS (6)
  - General physical health deterioration [Fatal]
  - Hypophagia [Fatal]
  - Staphylococcal infection [Fatal]
  - Thrombocytopenia [Fatal]
  - Transaminases increased [Fatal]
  - Treatment failure [Fatal]
